FAERS Safety Report 4657388-6 (Version None)
Quarter: 2005Q2

REPORT INFORMATION
  Report Type: 
  Country: None (occurrence: None)
  Receive Date: 20050405
  Receipt Date: 20040809
  Transmission Date: 20051028
  Serious: Yes (Other)
  Sender: FDA-Public Use
  Company Number: 2004054027

PATIENT
  Sex: 0

DRUGS (5)
  1. GEODON [Suspect]
     Indication: ILL-DEFINED DISORDER
  2. RISPERDAL [Suspect]
     Indication: ILL-DEFINED DISORDER
  3. LAMOTRIGINE [Suspect]
     Indication: ILL-DEFINED DISORDER
  4. CITALOPRAM HYDROBROMIDE [Concomitant]
  5. ALL OTHER THERAPEUTIC PRODUCTS (ALL OTHER THERAPEUTIC PRODUCTS) [Concomitant]

REACTIONS (1)
  - ELECTROCARDIOGRAM ABNORMAL [None]
